FAERS Safety Report 11281335 (Version 2)
Quarter: 2015Q3

REPORT INFORMATION
  Report Type: Spontaneous
  Country: RS (occurrence: RS)
  Receive Date: 20150717
  Receipt Date: 20150721
  Transmission Date: 20151125
  Serious: Yes (Death, Other)
  Sender: FDA-Public Use
  Company Number: PHHY2015RS083815

PATIENT
  Age: 28 Year
  Sex: Male

DRUGS (4)
  1. DIAZEPAM. [Concomitant]
     Active Substance: DIAZEPAM
     Indication: DETOXIFICATION
     Dosage: 30 MG, UNK
     Route: 065
  2. METHADONE [Suspect]
     Active Substance: METHADONE HYDROCHLORIDE
     Dosage: 30 MG, QD
  3. CLOZAPINE. [Concomitant]
     Active Substance: CLOZAPINE
     Indication: DETOXIFICATION
     Dosage: 25 MG, UNK
     Route: 065
  4. METHADONE [Suspect]
     Active Substance: METHADONE HYDROCHLORIDE
     Indication: DETOXIFICATION
     Dosage: 20 MG, QD
     Route: 065

REACTIONS (3)
  - Oedema [Fatal]
  - Cardiotoxicity [Fatal]
  - Hepatitis viral [Unknown]
